FAERS Safety Report 7327853-1 (Version None)
Quarter: 2011Q1

REPORT INFORMATION
  Report Type: 
  Country: None (occurrence: None)
  Receive Date: 20110303
  Receipt Date: 20110228
  Transmission Date: 20110831
  Serious: No
  Sender: FDA-Public Use
  Company Number: US-PFIZER INC-2011043740

PATIENT
  Sex: Female
  Weight: 72.562 kg

DRUGS (1)
  1. ADVIL COLD AND SINUS [Suspect]
     Indication: NASOPHARYNGITIS
     Dosage: 200MG/30MG, UNKNOWN FREQUENCY
     Route: 048
     Dates: start: 20110227, end: 20110227

REACTIONS (3)
  - FEELING HOT [None]
  - HOT FLUSH [None]
  - BURNING SENSATION [None]
